FAERS Safety Report 6383500-7 (Version None)
Quarter: 2009Q4

REPORT INFORMATION
  Report Type: 
  Country: None (occurrence: None)
  Receive Date: 20091001
  Receipt Date: 20090924
  Transmission Date: 20100525
  Serious: Yes (Hospitalization)
  Sender: FDA-Public Use
  Company Number: US-ELI_LILLY_AND_COMPANY-US200909005711

PATIENT
  Sex: Female
  Weight: 102.4 kg

DRUGS (4)
  1. BYETTA [Suspect]
     Indication: TYPE 2 DIABETES MELLITUS
     Dosage: 5 UG, 2/D
     Route: 058
     Dates: start: 20080101
  2. BYETTA [Suspect]
     Dosage: 10 UG, 2/D
     Route: 058
     Dates: end: 20090501
  3. GLYBURIDE [Concomitant]
     Dosage: UNK, 2/D
  4. DIURETICS [Concomitant]

REACTIONS (3)
  - ABDOMINAL PAIN UPPER [None]
  - NON-CARDIAC CHEST PAIN [None]
  - PANCREATITIS [None]
